FAERS Safety Report 24363322 (Version 5)
Quarter: 2025Q2

REPORT INFORMATION
  Report Type: Report from Study
  Country: CA (occurrence: CA)
  Receive Date: 20240925
  Receipt Date: 20250520
  Transmission Date: 20250716
  Serious: Yes (Other)
  Sender: JOHNSON AND JOHNSON
  Company Number: CA-JNJFOC-20240849881

PATIENT
  Age: 55 Year
  Sex: Female

DRUGS (3)
  1. SIMPONI [Suspect]
     Active Substance: GOLIMUMAB
     Indication: Rheumatoid arthritis
     Route: 058
     Dates: start: 20230503
  2. SIMPONI [Suspect]
     Active Substance: GOLIMUMAB
     Route: 058
  3. SIMPONI [Suspect]
     Active Substance: GOLIMUMAB
     Route: 058

REACTIONS (11)
  - Cataract [Unknown]
  - Influenza like illness [Unknown]
  - Arthralgia [Unknown]
  - Hypoaesthesia [Unknown]
  - Fall [Unknown]
  - Injury [Unknown]
  - Contusion [Unknown]
  - Blood pressure increased [Unknown]
  - Infection [Not Recovered/Not Resolved]
  - Off label use [Unknown]
  - Ear infection [Unknown]
